FAERS Safety Report 5033693-9 (Version None)
Quarter: 2006Q2

REPORT INFORMATION
  Report Type: 
  Country: None (occurrence: None)
  Receive Date: 20060623
  Receipt Date: 20060619
  Transmission Date: 20061013
  Serious: Yes (Hospitalization)
  Sender: FDA-Public Use
  Company Number: SE-GLAXOSMITHKLINE-B0428534A

PATIENT
  Age: 68 Year
  Sex: Male

DRUGS (8)
  1. EPIVIR [Suspect]
     Indication: DRUG USE FOR UNKNOWN INDICATION
     Route: 048
     Dates: start: 20060101, end: 20060418
  2. NEORECORMON [Concomitant]
  3. ORALOVITE [Concomitant]
  4. PREDNISOLONE [Concomitant]
  5. ETALPHA [Concomitant]
  6. FURIX [Concomitant]
  7. LANSOPRAZOLE [Concomitant]
  8. CELLCEPT [Concomitant]

REACTIONS (5)
  - BONE MARROW TOXICITY [None]
  - DIARRHOEA [None]
  - PANCYTOPENIA [None]
  - PLATELET COUNT DECREASED [None]
  - RENAL IMPAIRMENT [None]
